FAERS Safety Report 9129895 (Version 1)
Quarter: 2013Q1

REPORT INFORMATION
  Report Type: Spontaneous
  Country: US (occurrence: US)
  Receive Date: 20130228
  Receipt Date: 20130228
  Transmission Date: 20140127
  Serious: No
  Sender: FDA-Public Use
  Company Number: US-ASTRAZENECA-2013SE12643

PATIENT
  Age: 62 Year
  Sex: Female
  Weight: 123.4 kg

DRUGS (4)
  1. NEXIUM [Suspect]
     Indication: HIATUS HERNIA
     Route: 048
     Dates: start: 2007
  2. LOSARTAN [Concomitant]
     Indication: BLOOD PRESSURE
  3. CELEBREX [Concomitant]
  4. TRIANTERENE/HCTZ [Concomitant]

REACTIONS (5)
  - Back disorder [Not Recovered/Not Resolved]
  - Arthropathy [Not Recovered/Not Resolved]
  - Hypertension [Not Recovered/Not Resolved]
  - Overweight [Not Recovered/Not Resolved]
  - Off label use [Not Recovered/Not Resolved]
